FAERS Safety Report 15124627 (Version 2)
Quarter: 2018Q4

REPORT INFORMATION
  Report Type: Spontaneous
  Country: US (occurrence: US)
  Receive Date: 20180710
  Receipt Date: 20181003
  Transmission Date: 20190204
  Serious: No
  Sender: FDA-Public Use
  Company Number: US-PFIZER INC-2018276531

PATIENT
  Age: 51 Year
  Sex: Female

DRUGS (1)
  1. EUCRISA [Suspect]
     Active Substance: CRISABOROLE
     Indication: DERMATITIS ATOPIC
     Dosage: UNK, AS NEEDED (APPLY ONE APPLICATION TOPICALLY TWICE A DAY AS NEEDED)
     Route: 061
     Dates: start: 20180606

REACTIONS (2)
  - Skin disorder [Unknown]
  - Skin irritation [Unknown]

NARRATIVE: CASE EVENT DATE: 2018
